FAERS Safety Report 12084651 (Version 3)
Quarter: 2016Q2

REPORT INFORMATION
  Report Type: Report from Study
  Country: US (occurrence: US)
  Receive Date: 20160217
  Receipt Date: 20160520
  Transmission Date: 20160815
  Serious: Yes (Hospitalization, Other)
  Sender: FDA-Public Use
  Company Number: US-JNJFOC-20160204847

PATIENT
  Age: 50 Year
  Sex: Female
  Weight: 77.11 kg

DRUGS (2)
  1. TYLENOL PM [Suspect]
     Active Substance: ACETAMINOPHEN\DIPHENHYDRAMINE
     Indication: INSOMNIA
     Dosage: INGESTED 100 TABLETS
     Route: 048
     Dates: start: 20160202
  2. TYLENOL PM [Suspect]
     Active Substance: ACETAMINOPHEN\DIPHENHYDRAMINE
     Indication: DEPRESSION
     Dosage: INGESTED 100 TABLETS
     Route: 048
     Dates: start: 20160202

REACTIONS (4)
  - Off label use [Unknown]
  - Intentional overdose [Recovering/Resolving]
  - Agitation [Unknown]
  - Product use issue [Unknown]

NARRATIVE: CASE EVENT DATE: 201602
